FAERS Safety Report 6527779-7 (Version None)
Quarter: 2010Q1

REPORT INFORMATION
  Report Type: 
  Country: None (occurrence: None)
  Receive Date: 20100106
  Receipt Date: 20091223
  Transmission Date: 20100710
  Serious: Yes (Hospitalization)
  Sender: FDA-Public Use
  Company Number: US-BAYER-USA-2002-000322

PATIENT
  Age: 43 Year
  Sex: Male

DRUGS (2)
  1. BETASERON [Suspect]
     Indication: MULTIPLE SCLEROSIS
     Dosage: TOTAL DAILY DOSE: 8 MIU
     Route: 058
     Dates: start: 20020304, end: 20090901
  2. BACLOFEN [Concomitant]
     Dosage: PUMP
     Dates: start: 20080901

REACTIONS (2)
  - BLOOD PRESSURE ABNORMAL [None]
  - MULTIPLE SCLEROSIS [None]
